FAERS Safety Report 20175978 (Version 1)
Quarter: 2021Q4

REPORT INFORMATION
  Report Type: Spontaneous
  Country: US (occurrence: None)
  Receive Date: 20211210
  Receipt Date: 20211210
  Transmission Date: 20220303
  Serious: Yes (Other)
  Sender: FDA-Public Use
  Company Number: None

PATIENT
  Age: 18 Year
  Sex: Female
  Weight: 47.2 kg

DRUGS (2)
  1. BAMLANIVIMAB [Suspect]
     Active Substance: BAMLANIVIMAB
     Indication: COVID-19
     Dosage: OTHER FREQUENCY : ONE TIME ONLY;?
     Route: 040
     Dates: start: 20211208, end: 20211208
  2. ETESEVIMAB [Suspect]
     Active Substance: ETESEVIMAB
     Indication: COVID-19
     Dosage: OTHER FREQUENCY : ONE TIME ONLY;?
     Route: 041
     Dates: start: 20211208, end: 20211208

REACTIONS (3)
  - Flushing [None]
  - Chest discomfort [None]
  - Therapy cessation [None]

NARRATIVE: CASE EVENT DATE: 20211208
